FAERS Safety Report 5625315-0 (Version None)
Quarter: 2008Q1

REPORT INFORMATION
  Report Type: 
  Country: None (occurrence: None)
  Receive Date: 20080211
  Receipt Date: 20080130
  Transmission Date: 20080703
  Serious: Yes (Hospitalization)
  Sender: FDA-Public Use
  Company Number: AX205-08-0039

PATIENT
  Age: 56 Year
  Sex: Female
  Weight: 98.5 kg

DRUGS (10)
  1. ABRAXANE [Suspect]
     Indication: BREAST CANCER METASTATIC
     Dosage: 264 MG (1 IN 1 WK)
     Dates: start: 20070928
  2. NEXAVAR [Suspect]
     Indication: BREAST CANCER METASTATIC
     Dosage: 200 MG (2 IN 1 D) , ORAL
     Route: 048
     Dates: start: 20070928
  3. NEXAVAR [Suspect]
  4. ZOMETA [Concomitant]
  5. ALTACE [Concomitant]
  6. LORTAB [Concomitant]
  7. COMPAZINE (PROCHLORPERAZINE EDISYLATE) [Concomitant]
  8. DULCOLAX [Concomitant]
  9. ARNESP (DARBEPOETIN ALFA) [Concomitant]
  10. OXYGEN [Concomitant]

REACTIONS (1)
  - SUBCUTANEOUS ABSCESS [None]
